FAERS Safety Report 21945169 (Version 2)
Quarter: 2024Q4

REPORT INFORMATION
  Report Type: Spontaneous
  Country: JP (occurrence: JP)
  Receive Date: 20230202
  Receipt Date: 20241022
  Transmission Date: 20250115
  Serious: Yes (Hospitalization)
  Sender: ELI LILLY AND COMPANY
  Company Number: JP-ELI_LILLY_AND_COMPANY-JP202301014466

PATIENT
  Age: 74 Year
  Sex: Male
  Weight: 66 kg

DRUGS (11)
  1. TADALAFIL [Suspect]
     Active Substance: TADALAFIL
     Indication: Pulmonary arterial hypertension
     Dosage: 20 MG, DAILY
     Route: 048
     Dates: start: 20221206, end: 202301
  2. UPTRAVI [Concomitant]
     Active Substance: SELEXIPAG
     Indication: Pulmonary arterial hypertension
     Dosage: 0.4 MG, DAILY
     Route: 048
     Dates: start: 20221221, end: 20230115
  3. UPTRAVI [Concomitant]
     Active Substance: SELEXIPAG
     Dosage: 3.2 MG, DAILY
     Route: 048
     Dates: start: 20230116
  4. OPSUMIT [Concomitant]
     Active Substance: MACITENTAN
     Indication: Pulmonary arterial hypertension
     Dosage: 10 MG, DAILY
     Route: 048
     Dates: start: 20221213, end: 202301
  5. DOBUTAMINE [Concomitant]
     Active Substance: DOBUTAMINE HYDROCHLORIDE
     Dosage: 4 GAMMA
     Dates: start: 20221114, end: 20221212
  6. DOBUTAMINE [Concomitant]
     Active Substance: DOBUTAMINE HYDROCHLORIDE
     Dosage: 3 GAMMA
     Dates: start: 20221213, end: 20221220
  7. DOBUTAMINE [Concomitant]
     Active Substance: DOBUTAMINE HYDROCHLORIDE
     Dosage: 2 GAMMA
     Dates: start: 20221221, end: 20230115
  8. DOBUTAMINE [Concomitant]
     Active Substance: DOBUTAMINE HYDROCHLORIDE
     Dosage: 1 GAMMA
     Dates: start: 20230116, end: 20230131
  9. TOLVAPTAN [Concomitant]
     Active Substance: TOLVAPTAN
     Dosage: 3.75 MG, DAILY
     Dates: start: 20221114
  10. TORSEMIDE [Concomitant]
     Active Substance: TORSEMIDE
     Dosage: 4 MG, DAILY
     Route: 048
     Dates: start: 20221114
  11. SPIRONOLACTONE [Concomitant]
     Active Substance: SPIRONOLACTONE
     Dosage: 25 MG, DAILY
     Route: 048
     Dates: start: 20221114

REACTIONS (2)
  - Atrial fibrillation [Unknown]
  - Pulmonary congestion [Unknown]

NARRATIVE: CASE EVENT DATE: 20230119
